FAERS Safety Report 14475138 (Version 1)
Quarter: 2018Q1

REPORT INFORMATION
  Report Type: Spontaneous
  Country: US (occurrence: US)
  Receive Date: 20180131
  Receipt Date: 20180131
  Transmission Date: 20180509
  Serious: No
  Sender: FDA-Public Use
  Company Number: None

PATIENT
  Age: 23 Year
  Sex: Male

DRUGS (5)
  1. NORTRIPTYLIN [Concomitant]
     Active Substance: NORTRIPTYLINE
  2. RIZATRIPTAN. [Concomitant]
     Active Substance: RIZATRIPTAN
  3. FLUTICASONE. [Concomitant]
     Active Substance: FLUTICASONE
  4. MULTIVITAMIN [Concomitant]
     Active Substance: VITAMINS
  5. TESTOST.CYP 200 MG/ML MDV 10ML ACTAVIS [Suspect]
     Active Substance: TESTOSTERONE CYPIONATE
     Indication: HYPOPITUITARISM
     Dosage: OTHER FREQUENCY:7 DAYS;?
     Route: 030
     Dates: start: 20110202

REACTIONS (1)
  - Wrong technique in product usage process [None]

NARRATIVE: CASE EVENT DATE: 20180131
